FAERS Safety Report 18056985 (Version 2)
Quarter: 2023Q1

REPORT INFORMATION
  Report Type: Other
  Country: US (occurrence: None)
  Receive Date: 20200723
  Receipt Date: 20230102
  Transmission Date: 20230418
  Serious: Yes (Other)
  Sender: FDA-Public Use
  Company Number: US-ROCHE-2609782

PATIENT
  Sex: Female

DRUGS (22)
  1. ZELBORAF [Suspect]
     Active Substance: VEMURAFENIB
     Indication: Histiocytosis
     Dosage: TAKE 2 TABLET(S) BY MOUTH EVERY 12 HOURS
     Route: 048
  2. ZELBORAF [Suspect]
     Active Substance: VEMURAFENIB
     Indication: Alopecia scarring
     Route: 048
  3. ZELBORAF [Suspect]
     Active Substance: VEMURAFENIB
     Indication: Uveitis
     Dosage: ONGOING :YES
     Route: 048
     Dates: start: 201704
  4. ZELBORAF [Suspect]
     Active Substance: VEMURAFENIB
     Indication: Erdheim-Chester disease
  5. ZELBORAF [Suspect]
     Active Substance: VEMURAFENIB
     Indication: Alopecia areata
  6. ZELBORAF [Suspect]
     Active Substance: VEMURAFENIB
     Indication: Sunburn
  7. PREDNISONE [Concomitant]
     Active Substance: PREDNISONE
     Indication: Inflammation
     Dosage: ONGOING YES
  8. ESCITALOPRAM [Concomitant]
     Active Substance: ESCITALOPRAM OXALATE
     Dosage: ONGOING :YES
  9. LOSARTAN [Concomitant]
     Active Substance: LOSARTAN
     Indication: Hypertension
     Dosage: ONGOING: NO
  10. LOSARTAN [Concomitant]
     Active Substance: LOSARTAN
     Dosage: ONGOING :YES
     Dates: start: 202007
  11. DICYCLOMINE [Concomitant]
     Active Substance: DICYCLOMINE HYDROCHLORIDE
     Indication: Irritable bowel syndrome
     Dosage: ONGOING: YES
  12. PREDNISOLONE ACETATE [Concomitant]
     Active Substance: PREDNISOLONE ACETATE
     Indication: Uveitis
     Dosage: ONGOING NO
  13. PREDNISOLONE ACETATE [Concomitant]
     Active Substance: PREDNISOLONE ACETATE
  14. KETOROLAC [Concomitant]
     Active Substance: KETOROLAC TROMETHAMINE
     Indication: Uveitis
     Dosage: ONGOING NO
  15. KETOROLAC [Concomitant]
     Active Substance: KETOROLAC TROMETHAMINE
     Dosage: ONGOING YES
  16. LEVOTHYROXINE [Concomitant]
     Active Substance: LEVOTHYROXINE
     Dosage: ONGOING YES
     Dates: start: 2017
  17. CALCIUM [Concomitant]
     Active Substance: CALCIUM
     Dosage: ONGOING YES
  18. VITAMIN D3 [Concomitant]
     Active Substance: CHOLECALCIFEROL
     Dosage: ONGOING YES
  19. ACETAMINOPHEN [Concomitant]
     Active Substance: ACETAMINOPHEN
  20. RABEPRAZOLE [Concomitant]
     Active Substance: RABEPRAZOLE
     Indication: Gastrooesophageal reflux disease
  21. OMEPRAZOLE [Concomitant]
     Active Substance: OMEPRAZOLE
     Indication: Gastrooesophageal reflux disease
  22. DENOSUMAB [Concomitant]
     Active Substance: DENOSUMAB

REACTIONS (15)
  - Uveitis [Unknown]
  - Anaemia [Not Recovered/Not Resolved]
  - Alopecia [Unknown]
  - Sunburn [Unknown]
  - Hypertension [Unknown]
  - Nasopharyngitis [Unknown]
  - Headache [Unknown]
  - Sinusitis [Unknown]
  - Throat irritation [Unknown]
  - Ear discomfort [Unknown]
  - Sleep disorder [Not Recovered/Not Resolved]
  - Fatigue [Not Recovered/Not Resolved]
  - Vision blurred [Recovered/Resolved]
  - Hypotension [Not Recovered/Not Resolved]
  - Weight decreased [Not Recovered/Not Resolved]

NARRATIVE: CASE EVENT DATE: 20180101
